FAERS Safety Report 13309355 (Version 2)
Quarter: 2017Q1

REPORT INFORMATION
  Report Type: Spontaneous
  Country: US (occurrence: US)
  Receive Date: 20170309
  Receipt Date: 20170309
  Transmission Date: 20170428
  Serious: No
  Sender: FDA-Public Use
  Company Number: US-ALKABELLO-2017AA000808

PATIENT
  Age: 41 Year
  Sex: Male

DRUGS (10)
  1. GRASTEK [Suspect]
     Active Substance: PHLEUM PRATENSE POLLEN
     Indication: SEASONAL ALLERGY
     Dosage: DOSE UNIT:2800 BIOEQUIVALENT ALLERGENIC UNIT (S)
     Route: 060
     Dates: start: 20170208, end: 20170217
  2. LISINOPRIL. [Concomitant]
     Active Substance: LISINOPRIL
  3. SPIRIVA [Concomitant]
     Active Substance: TIOTROPIUM BROMIDE MONOHYDRATE
  4. LYRICA [Concomitant]
     Active Substance: PREGABALIN
  5. LORATADINE. [Concomitant]
     Active Substance: LORATADINE
  6. ACETAMINOPHEN. [Concomitant]
     Active Substance: ACETAMINOPHEN
  7. METHIMAZOLE. [Concomitant]
     Active Substance: METHIMAZOLE
  8. PROMETHAZINE [Concomitant]
     Active Substance: PROMETHAZINE\PROMETHAZINE HYDROCHLORIDE
  9. CARISOPRODOL. [Concomitant]
     Active Substance: CARISOPRODOL
  10. CYANOCOBALAMIN. [Concomitant]
     Active Substance: CYANOCOBALAMIN

REACTIONS (5)
  - Tongue pruritus [Recovered/Resolved]
  - Eye pruritus [Recovered/Resolved]
  - Gastrooesophageal reflux disease [Recovered/Resolved]
  - Oral pruritus [Recovered/Resolved]
  - Chest pain [Recovered/Resolved]

NARRATIVE: CASE EVENT DATE: 201702
